FAERS Safety Report 5662944-2 (Version None)
Quarter: 2008Q1

REPORT INFORMATION
  Report Type: 
  Country: None (occurrence: None)
  Receive Date: 20080307
  Receipt Date: 20080220
  Transmission Date: 20080703
  Serious: Yes (Other)
  Sender: FDA-Public Use
  Company Number: IMP_03526_2008

PATIENT
  Sex: Female

DRUGS (3)
  1. BUDEPRION 300 MG (NOT SPECIFIED) [Suspect]
     Indication: DRUG USE FOR UNKNOWN INDICATION
     Dates: start: 20070601
  2. TRILEPTAL [Suspect]
     Indication: DRUG USE FOR UNKNOWN INDICATION
     Dosage: DF
  3. SYNTHROID [Concomitant]

REACTIONS (6)
  - BLOOD SODIUM DECREASED [None]
  - DIZZINESS [None]
  - DRUG INEFFECTIVE [None]
  - IRRITABILITY [None]
  - MIGRAINE [None]
  - SUICIDAL BEHAVIOUR [None]
